FAERS Safety Report 16767088 (Version 2)
Quarter: 2019Q4

REPORT INFORMATION
  Report Type: Spontaneous
  Country: TR (occurrence: TR)
  Receive Date: 20190903
  Receipt Date: 20191211
  Transmission Date: 20200122
  Serious: Yes (Hospitalization)
  Sender: FDA-Public Use
  Company Number: TR-AMERICAN REGENT INC-2019001907

PATIENT
  Age: 39 Year
  Sex: Female
  Weight: 85 kg

DRUGS (1)
  1. FERINJECT [Suspect]
     Active Substance: FERRIC CARBOXYMALTOSE
     Indication: IRON DEFICIENCY ANAEMIA
     Dosage: 2 AMPOULE VIA 250 CC NORMAL SALINE, QD
     Dates: start: 20190318, end: 20190318

REACTIONS (6)
  - Swelling of eyelid [Recovered/Resolved]
  - Macule [Recovered/Resolved]
  - Lip swelling [Recovered/Resolved]
  - Pruritus [Recovered/Resolved]
  - Ocular hyperaemia [Recovered/Resolved]
  - Urticaria [Recovered/Resolved]

NARRATIVE: CASE EVENT DATE: 20190318
